FAERS Safety Report 7594058-9 (Version None)
Quarter: 2011Q3

REPORT INFORMATION
  Report Type: 
  Country: None (occurrence: None)
  Receive Date: 20110706
  Receipt Date: 20110623
  Transmission Date: 20111222
  Serious: Yes (Other)
  Sender: FDA-Public Use
  Company Number: US-PFIZER INC-2006102257

PATIENT
  Sex: Female
  Weight: 73 kg

DRUGS (4)
  1. PROVERA [Suspect]
     Indication: HORMONE REPLACEMENT THERAPY
     Dosage: 2.5 MG, UNK
     Route: 048
     Dates: start: 19950523, end: 19970909
  2. PREMPRO [Suspect]
     Indication: HORMONE REPLACEMENT THERAPY
     Dosage: 0.625/2.5MG
     Dates: start: 19970909, end: 20020715
  3. PREMARIN [Suspect]
     Indication: HORMONE REPLACEMENT THERAPY
     Dosage: 0.3 MG, UNK
     Dates: start: 19950523, end: 19970909
  4. CYCRIN [Suspect]
     Indication: HORMONE REPLACEMENT THERAPY
     Dosage: 2.5 MG, UNK
     Dates: start: 19960801, end: 19970601

REACTIONS (1)
  - BREAST CANCER [None]
